FAERS Safety Report 23789695 (Version 1)
Quarter: 2024Q2

REPORT INFORMATION
  Report Type: Spontaneous
  Country: US (occurrence: None)
  Receive Date: 20240426
  Receipt Date: 20240426
  Transmission Date: 20240716
  Serious: No
  Sender: FDA-Public Use
  Company Number: None

PATIENT
  Age: 78 Year
  Sex: Male

DRUGS (2)
  1. CIPROFLOXACIN [Suspect]
     Active Substance: CIPROFLOXACIN
     Indication: Infection
     Dates: start: 20230517, end: 20230530
  2. CEFEPIME HYDROCHLORIDE [Suspect]
     Active Substance: CEFEPIME HYDROCHLORIDE
     Indication: Infection
     Dates: start: 20230515, end: 20230517

REACTIONS (5)
  - Clostridium difficile infection [None]
  - Hypotension [None]
  - Escherichia bacteraemia [None]
  - Urinary tract infection [None]
  - Leukocytosis [None]

NARRATIVE: CASE EVENT DATE: 20230531
